FAERS Safety Report 14490436 (Version 2)
Quarter: 2018Q1

REPORT INFORMATION
  Report Type: Spontaneous
  Country: CZ (occurrence: CZ)
  Receive Date: 20180206
  Receipt Date: 20180315
  Transmission Date: 20180509
  Serious: Yes (Death, Hospitalization, Other)
  Sender: FDA-Public Use
  Company Number: CZ-BRISTOL-MYERS SQUIBB COMPANY-BMS-2018-006398

PATIENT
  Age: 88 Year
  Sex: Male

DRUGS (2)
  1. WARFARIN SODIUM. [Suspect]
     Active Substance: WARFARIN SODIUM
     Indication: PRODUCT USED FOR UNKNOWN INDICATION
     Dosage: 5 MG, DAILY
     Route: 065
     Dates: start: 20140912
  2. PRADAXA [Interacting]
     Active Substance: DABIGATRAN ETEXILATE MESYLATE
     Indication: ANTICOAGULANT THERAPY
     Dosage: 110 MG, DAILY
     Route: 065
     Dates: end: 20140916

REACTIONS (14)
  - Accidental overdose [Unknown]
  - Pyrexia [Unknown]
  - Cerebral haemorrhage [Fatal]
  - International normalised ratio increased [Unknown]
  - Labelled drug-drug interaction medication error [Unknown]
  - Haemoptysis [Unknown]
  - Loss of consciousness [Unknown]
  - Aspiration [Unknown]
  - Condition aggravated [Unknown]
  - Vomiting [Unknown]
  - Mouth haemorrhage [Unknown]
  - Drug prescribing error [Unknown]
  - Pneumonia [Unknown]
  - Foaming at mouth [Unknown]

NARRATIVE: CASE EVENT DATE: 20140912
